FAERS Safety Report 19494086 (Version 6)
Quarter: 2022Q3

REPORT INFORMATION
  Report Type: Report from Study
  Country: US (occurrence: US)
  Receive Date: 20210706
  Receipt Date: 20220720
  Transmission Date: 20221026
  Serious: Yes (Other)
  Sender: FDA-Public Use
  Company Number: US-ABBVIE-21K-163-3968114-00

PATIENT
  Sex: Female
  Weight: 89.892 kg

DRUGS (5)
  1. HUMIRA [Suspect]
     Active Substance: ADALIMUMAB
     Indication: Rheumatoid arthritis
     Dosage: CITRATE FREE
     Route: 058
     Dates: start: 2019, end: 20210519
  2. LISINOPRIL [Concomitant]
     Active Substance: LISINOPRIL
     Indication: Hypertension
  3. HYDROCHLOROTHIAZIDE [Concomitant]
     Active Substance: HYDROCHLOROTHIAZIDE
     Indication: Hypertension
  4. PFIZER-BIONTECH COVID-19 VACCINE [Concomitant]
     Active Substance: TOZINAMERAN
     Indication: COVID-19 immunisation
     Route: 030
     Dates: start: 20210228, end: 20210228
  5. PFIZER-BIONTECH COVID-19 VACCINE [Concomitant]
     Active Substance: TOZINAMERAN
     Route: 030
     Dates: start: 20210321, end: 20210321

REACTIONS (11)
  - Procedural hypotension [Recovered/Resolved]
  - Surgical stapling [Recovering/Resolving]
  - Knee arthroplasty [Recovering/Resolving]
  - Knee operation [Recovered/Resolved]
  - Eye disorder [Not Recovered/Not Resolved]
  - Vision blurred [Unknown]
  - Back disorder [Recovering/Resolving]
  - Pain in extremity [Recovering/Resolving]
  - Muscle spasms [Recovering/Resolving]
  - Bronchitis [Recovering/Resolving]
  - Eye pain [Not Recovered/Not Resolved]

NARRATIVE: CASE EVENT DATE: 20210101
